FAERS Safety Report 4612963-X (Version None)
Quarter: 2005Q1

REPORT INFORMATION
  Report Type: 
  Country: None (occurrence: None)
  Receive Date: 20050318
  Receipt Date: 20050307
  Transmission Date: 20050727
  Serious: Yes (Other)
  Sender: FDA-Public Use
  Company Number: AU-ROCHE-398397

PATIENT
  Age: 52 Year
  Sex: Male

DRUGS (4)
  1. PEGASYS [Suspect]
     Dosage: PATIENT WAS TREATED FOR 24 WEEKS
     Route: 065
  2. RIBAVIRIN [Suspect]
     Dosage: PATIENT WAS TREATED FOR 24 WEEKS
     Route: 065
  3. PROPRANOLOL [Concomitant]
     Indication: PORTAL HYPERTENSION
     Dosage: STARTED 2 WEEKS AFTER COMBINATION THERAPY WAS INITIATED.
  4. NEUPOGEN [Concomitant]
     Dosage: TREATED WITH THIS FOR LAST 14 WEEKS OF COMBINATION THERAPY.

REACTIONS (4)
  - DEPRESSED MOOD [None]
  - IRRITABILITY [None]
  - LETHARGY [None]
  - LICHEN PLANUS [None]
